FAERS Safety Report 5174408-3 (Version None)
Quarter: 2006Q4

REPORT INFORMATION
  Report Type: 
  Country: None (occurrence: None)
  Receive Date: 20061214
  Receipt Date: 20061204
  Transmission Date: 20070319
  Serious: Yes (Hospitalization)
  Sender: FDA-Public Use
  Company Number: US-SANOFI-SYNTHELABO-A03200607266

PATIENT
  Age: 69 Year
  Sex: Female

DRUGS (9)
  1. VITAMIN TAB [Concomitant]
     Dosage: UNK
     Route: 048
  2. ACTONEL [Concomitant]
     Route: 048
  3. SYNTHROID [Concomitant]
     Dosage: UNK
     Route: 048
  4. NITROGLYCERIN [Concomitant]
     Dosage: UNK
     Route: 062
  5. AVAPRO [Concomitant]
     Dosage: UNK
     Route: 048
  6. LIPITOR [Concomitant]
     Dosage: UNK
     Route: 048
  7. METOPROLOL SUCCINATE [Concomitant]
     Indication: DRUG USE FOR UNKNOWN INDICATION
     Dosage: UNK
     Route: 048
  8. PLAVIX [Suspect]
     Route: 048
     Dates: start: 20020101, end: 20060101
  9. PLAVIX [Suspect]
     Indication: MYOCARDIAL INFARCTION
     Route: 048
     Dates: start: 20020101, end: 20060101

REACTIONS (1)
  - PULMONARY EMBOLISM [None]
